FAERS Safety Report 4325991-9 (Version None)
Quarter: 2004Q1

REPORT INFORMATION
  Report Type: 
  Country: None (occurrence: None)
  Receive Date: 20040329
  Receipt Date: 20040317
  Transmission Date: 20041129
  Serious: Yes (Congenital Anomaly)
  Sender: FDA-Public Use
  Company Number: NL-GLAXOSMITHKLINE-B0327273A

PATIENT
  Sex: Male

DRUGS (6)
  1. EPIVIR [Suspect]
     Dosage: 300MG UNKNOWN
     Dates: start: 20020110
  2. VIRACEPT [Concomitant]
     Dosage: 2500MG UNKNOWN
     Dates: start: 20020110
  3. VIRAMUNE [Concomitant]
     Dosage: 400MG UNKNOWN
  4. RETROVIR [Concomitant]
     Dosage: 600MG UNKNOWN
  5. KALETRA [Concomitant]
     Dosage: 6MG UNKNOWN
  6. VIREAD [Concomitant]
     Dosage: 300MG UNKNOWN

REACTIONS (2)
  - CONGENITAL CYSTIC LUNG [None]
  - DRUG EXPOSURE DURING PREGNANCY [None]
